FAERS Safety Report 25734810 (Version 1)
Quarter: 2025Q3

REPORT INFORMATION
  Report Type: Spontaneous
  Country: GB (occurrence: GB)
  Receive Date: 20250828
  Receipt Date: 20250828
  Transmission Date: 20251021
  Serious: Yes (Hospitalization, Other)
  Sender: AUROBINDO
  Company Number: GB-MHRA-MED-202508170907580230-HWLKJ

PATIENT
  Age: 83 Year
  Sex: Female
  Weight: 45 kg

DRUGS (3)
  1. RIVAROXABAN [Suspect]
     Active Substance: RIVAROXABAN
     Indication: Adverse drug reaction
     Dosage: 10 MILLIGRAM, ONCE A DAY
     Route: 065
     Dates: start: 20250610, end: 20250621
  2. MORPHINE SULFATE [Concomitant]
     Active Substance: MORPHINE SULFATE
     Indication: Postoperative analgesia
     Route: 065
     Dates: start: 20250610
  3. ACETAMINOPHEN [Concomitant]
     Active Substance: ACETAMINOPHEN
     Indication: Adverse drug reaction
     Route: 065
     Dates: start: 20250610

REACTIONS (1)
  - Internal haemorrhage [Recovering/Resolving]

NARRATIVE: CASE EVENT DATE: 20250618
